FAERS Safety Report 9779752 (Version 2)
Quarter: 2014Q1

REPORT INFORMATION
  Report Type: Spontaneous
  Country: US (occurrence: US)
  Receive Date: 20131223
  Receipt Date: 20140303
  Transmission Date: 20141002
  Serious: Yes (Death)
  Sender: FDA-Public Use
  Company Number: US-GLAXOSMITHKLINE-A1054374A

PATIENT
  Age: 65 Year
  Sex: Male

DRUGS (1)
  1. MEPRON [Suspect]
     Indication: PNEUMONIA
     Dosage: 750MG UNKNOWN
     Dates: start: 20130120

REACTIONS (3)
  - Death [Fatal]
  - Investigation [Unknown]
  - Living in residential institution [Unknown]
